FAERS Safety Report 10182750 (Version 1)
Quarter: 2014Q2

REPORT INFORMATION
  Report Type: Spontaneous
  Country: US (occurrence: None)
  Receive Date: 20140519
  Receipt Date: 20140519
  Transmission Date: 20141212
  Serious: Yes (Life-Threatening, Hospitalization, Disabling)
  Sender: FDA-Public Use
  Company Number: None

PATIENT
  Age: 53 Year
  Sex: Female
  Weight: 83.92 kg

DRUGS (1)
  1. AMIODARONE [Suspect]

REACTIONS (6)
  - Vomiting [None]
  - Food poisoning [None]
  - Toxicity to various agents [None]
  - Hypoacusis [None]
  - Hepatic enzyme increased [None]
  - Multi-organ disorder [None]
